FAERS Safety Report 9288975 (Version 1)
Quarter: 2013Q2

REPORT INFORMATION
  Report Type: Spontaneous
  Country: US (occurrence: None)
  Receive Date: 20130509
  Receipt Date: 20130509
  Transmission Date: 20140414
  Serious: Yes (Hospitalization)
  Sender: FDA-Public Use
  Company Number: 1156419

PATIENT
  Age: 57 Year
  Sex: Male
  Weight: 77.11 kg

DRUGS (1)
  1. MONISTAT 3 [Suspect]

REACTIONS (6)
  - Diarrhoea [None]
  - Pyrexia [None]
  - Neck pain [None]
  - Back pain [None]
  - Dysphagia [None]
  - Migraine [None]
